FAERS Safety Report 7680353-1 (Version None)
Quarter: 2011Q3

REPORT INFORMATION
  Report Type: 
  Country: None (occurrence: None)
  Receive Date: 20110812
  Receipt Date: 20110801
  Transmission Date: 20111222
  Serious: Yes (Hospitalization, Other)
  Sender: FDA-Public Use
  Company Number: FR-GLAXOSMITHKLINE-B0736210A

PATIENT
  Sex: Female

DRUGS (15)
  1. OMEPRAZOLE [Concomitant]
     Dosage: 20MG PER DAY
     Route: 042
     Dates: start: 20110608
  2. ZOVIRAX [Suspect]
     Indication: INFECTION PROPHYLAXIS
     Dosage: 250MG THREE TIMES PER DAY
     Route: 042
     Dates: start: 20110608
  3. PRIMPERAN TAB [Suspect]
     Dosage: 10MG THREE TIMES PER DAY
     Route: 042
     Dates: start: 20110608
  4. CIPROFLOXACIN [Suspect]
     Indication: INFECTION PROPHYLAXIS
     Route: 042
     Dates: start: 20110608, end: 20110627
  5. CELLCEPT [Suspect]
     Indication: STEM CELL TRANSPLANT
     Dosage: 500MG FOUR TIMES PER DAY
     Route: 042
     Dates: start: 20110612
  6. CYCLOSPORINE [Suspect]
     Indication: STEM CELL TRANSPLANT
     Route: 042
     Dates: start: 20110612
  7. MYCOSTATIN [Concomitant]
     Dosage: 1UNIT TWICE PER DAY
     Route: 048
     Dates: start: 20110609
  8. VANCOMYCIN [Concomitant]
     Dosage: 1G PER DAY
     Route: 042
     Dates: start: 20110608, end: 20110625
  9. ONDANSERTRON HYDROCHLORIDE [Suspect]
     Dosage: 8MG TWICE PER DAY
     Route: 042
     Dates: start: 20110608
  10. CEFTAZIDIME SODIUM [Suspect]
     Indication: INFECTION PROPHYLAXIS
     Dosage: 2G THREE TIMES PER DAY
     Route: 042
     Dates: start: 20110608
  11. FLUCONAZOLE [Concomitant]
     Dosage: 200MG PER DAY
     Route: 048
     Dates: start: 20110609
  12. TRANXENE [Concomitant]
     Dosage: 5MG FOUR TIMES PER DAY
     Route: 042
     Dates: start: 20110608
  13. RAMIPRIL [Concomitant]
     Dosage: 2.5MG PER DAY
     Route: 048
  14. GELOX [Concomitant]
     Dosage: 1SAC THREE TIMES PER DAY
     Route: 048
     Dates: start: 20110608
  15. HEPARIN SODIUM [Concomitant]
     Dosage: 15000IU PER DAY
     Route: 042
     Dates: start: 20110608

REACTIONS (11)
  - HOT FLUSH [None]
  - BRUXISM [None]
  - HYPERTONIA [None]
  - LOSS OF CONSCIOUSNESS [None]
  - EPILEPSY [None]
  - MALAISE [None]
  - AMNESIA [None]
  - TONGUE BITING [None]
  - BRADYCARDIA [None]
  - GRAND MAL CONVULSION [None]
  - URINARY INCONTINENCE [None]
